FAERS Safety Report 7319544-8 (Version None)
Quarter: 2011Q1

REPORT INFORMATION
  Report Type: 
  Country: None (occurrence: None)
  Receive Date: 20110228
  Receipt Date: 20100511
  Transmission Date: 20110831
  Serious: No
  Sender: FDA-Public Use
  Company Number: A0859131A

PATIENT
  Age: 46 Year
  Sex: Female

DRUGS (1)
  1. LAMICTAL [Suspect]
     Dosage: 25MG UNKNOWN
     Route: 048
     Dates: start: 20100423

REACTIONS (3)
  - ORAL PAIN [None]
  - TONGUE EXFOLIATION [None]
  - STOMATITIS [None]
